FAERS Safety Report 9406406 (Version 2)
Quarter: 2013Q3

REPORT INFORMATION
  Report Type: Report from Study
  Country: JP (occurrence: JP)
  Receive Date: 20130718
  Receipt Date: 20130906
  Transmission Date: 20140515
  Serious: Yes (Death)
  Sender: FDA-Public Use
  Company Number: JP-ROCHE-1249286

PATIENT
  Age: 81 Year
  Sex: Female
  Weight: 48 kg

DRUGS (5)
  1. METHOXY POLYETHYLENE GLYCOL-EPOETIN BETA [Suspect]
     Indication: NEPHROGENIC ANAEMIA
     Route: 042
     Dates: start: 20120705, end: 20121227
  2. RASILEZ [Concomitant]
     Indication: NEPHROSCLEROSIS
     Route: 048
  3. CALTAN [Concomitant]
     Indication: NEPHROSCLEROSIS
     Route: 048
  4. WARFARIN POTASSIUM [Concomitant]
     Indication: NEPHROSCLEROSIS
     Route: 048
  5. FESIN (JAPAN) [Concomitant]
     Indication: NEPHROSCLEROSIS
     Route: 042
     Dates: start: 20121120, end: 20121210

REACTIONS (1)
  - Road traffic accident [Fatal]
